FAERS Safety Report 5534169-2 (Version None)
Quarter: 2007Q4

REPORT INFORMATION
  Report Type: 
  Country: None (occurrence: None)
  Receive Date: 20071129
  Receipt Date: 20071129
  Transmission Date: 20080405
  Serious: Yes (Hospitalization)
  Sender: FDA-Public Use
  Company Number: None

PATIENT
  Age: 71 Year
  Sex: Male

DRUGS (1)
  1. AZACITIDINE [Suspect]
     Indication: NEOPLASM MALIGNANT
     Dosage: 125MG EVERY DAY IV
     Route: 042
     Dates: start: 20071106, end: 20071107

REACTIONS (1)
  - FEBRILE NEUTROPENIA [None]
